FAERS Safety Report 24685850 (Version 1)
Quarter: 2024Q4

REPORT INFORMATION
  Report Type: Report from Study
  Country: IT (occurrence: IT)
  Receive Date: 20241202
  Receipt Date: 20241202
  Transmission Date: 20250115
  Serious: Yes (Hospitalization, Other)
  Sender: SERVIER
  Company Number: None

PATIENT

DRUGS (3)
  1. PEGASPARGASE [Suspect]
     Active Substance: PEGASPARGASE
     Indication: B-cell type acute leukaemia
     Dosage: 3200 IU
     Route: 042
     Dates: start: 20240923, end: 20240923
  2. DOXORUBICIN HYDROCHLORIDE [Suspect]
     Active Substance: DOXORUBICIN HYDROCHLORIDE
     Indication: B-cell type acute leukaemia
     Dosage: 40,00 MG/DIE IN DATA 23, 30/09, 07, 28/10/2024
     Route: 042
     Dates: start: 20240923, end: 20241028
  3. DEXAMETHASONE [Concomitant]
     Active Substance: DEXAMETHASONE
     Indication: Product used for unknown indication
     Dosage: 2 MG:2 CPS X 3 VV/DIE DAL 16/09 AL 06/10/2024 3 CPS/DIE DAL 07 AL 09/10/2024 1 CPS + ? CPS/DIE DAL 1
     Route: 048
     Dates: start: 20240916, end: 20241015

REACTIONS (4)
  - Leukopenia [Recovering/Resolving]
  - Febrile neutropenia [Recovering/Resolving]
  - Thrombocytopenia [Recovered/Resolved]
  - Anaemia [Recovering/Resolving]

NARRATIVE: CASE EVENT DATE: 20241011
